FAERS Safety Report 4698815-8 (Version None)
Quarter: 2005Q2

REPORT INFORMATION
  Report Type: 
  Country: None (occurrence: None)
  Receive Date: 20050623
  Receipt Date: 20050616
  Transmission Date: 20051028
  Serious: Yes (Other)
  Sender: FDA-Public Use
  Company Number: 05-06-1066

PATIENT
  Age: 40 Year
  Sex: Male

DRUGS (2)
  1. TRAMADOL HCL [Suspect]
     Indication: BACK PAIN
     Dosage: 2 QDS ORAL
     Route: 048
     Dates: start: 20030602
  2. AMITRIPTYLINE [Suspect]

REACTIONS (1)
  - DRUG INTERACTION [None]
